FAERS Safety Report 7246668-6 (Version None)
Quarter: 2011Q1

REPORT INFORMATION
  Report Type: 
  Country: None (occurrence: None)
  Receive Date: 20110127
  Receipt Date: 20110114
  Transmission Date: 20110831
  Serious: No
  Sender: FDA-Public Use
  Company Number: US-BIOGENIDEC-2011BI002759

PATIENT
  Age: 55 Year
  Sex: Female

DRUGS (1)
  1. TYSABRI [Suspect]
     Indication: MULTIPLE SCLEROSIS
     Route: 042
     Dates: start: 20090813

REACTIONS (7)
  - FALL [None]
  - BONE PAIN [None]
  - DISTURBANCE IN ATTENTION [None]
  - HEAD INJURY [None]
  - SINUSITIS [None]
  - BLADDER DISORDER [None]
  - CONFUSIONAL STATE [None]
